FAERS Safety Report 7952615-1 (Version None)
Quarter: 2011Q4

REPORT INFORMATION
  Report Type: 
  Country: None (occurrence: None)
  Receive Date: 20111201
  Receipt Date: 20111121
  Transmission Date: 20120403
  Serious: Yes (Other)
  Sender: FDA-Public Use
  Company Number: US-JNJFOC-20111012747

PATIENT
  Sex: Female
  Weight: 94.8 kg

DRUGS (10)
  1. METHOTREXATE [Concomitant]
     Indication: ARTHRITIS
     Route: 048
  2. CYTOMEL [Concomitant]
     Indication: THYROID DISORDER
     Route: 048
     Dates: start: 19910101
  3. SYNTHROID [Concomitant]
     Indication: THYROID DISORDER
     Route: 048
     Dates: start: 19710101
  4. AMITIZA [Concomitant]
     Indication: GASTROINTESTINAL DISORDER
     Route: 048
     Dates: start: 20080101
  5. HYDROCHLOROTHIAZIDE [Concomitant]
     Indication: HYPERTENSION
     Route: 048
     Dates: start: 20080101
  6. CELEBREX [Concomitant]
     Indication: ARTHRITIS
     Route: 048
     Dates: start: 20010101
  7. FOLIC ACID [Concomitant]
     Indication: ARTHRITIS
     Route: 048
     Dates: start: 20080101
  8. SIMPONI [Suspect]
     Indication: RHEUMATOID ARTHRITIS
     Route: 058
     Dates: start: 20110501
  9. CREON [Concomitant]
     Indication: DYSPEPSIA
     Route: 048
     Dates: start: 19910101
  10. NEXIUM [Concomitant]
     Indication: DYSPEPSIA
     Route: 048
     Dates: start: 20010101

REACTIONS (4)
  - PITUITARY-DEPENDENT CUSHING'S SYNDROME [None]
  - DRUG DOSE OMISSION [None]
  - DEVICE MALFUNCTION [None]
  - DEPRESSION [None]
